FAERS Safety Report 11120924 (Version 3)
Quarter: 2015Q4

REPORT INFORMATION
  Report Type: Spontaneous
  Country: US (occurrence: US)
  Receive Date: 20150519
  Receipt Date: 20151119
  Transmission Date: 20160304
  Serious: Yes (Hospitalization, Other)
  Sender: FDA-Public Use
  Company Number: US-009507513-1505USA006613

PATIENT
  Sex: Male
  Weight: 97.52 kg

DRUGS (2)
  1. JANUVIA [Suspect]
     Active Substance: SITAGLIPTIN PHOSPHATE
     Indication: TYPE 2 DIABETES MELLITUS
     Dosage: 100 MG, QD
     Route: 048
     Dates: start: 20120716, end: 20130220
  2. BENICAR [Concomitant]
     Active Substance: OLMESARTAN MEDOXOMIL
     Indication: HYPERTENSION
     Dosage: UNK
     Dates: start: 2009

REACTIONS (22)
  - Reactive gastropathy [Unknown]
  - Mucosal erosion [Unknown]
  - Duodenitis [Unknown]
  - Pancreatic carcinoma [Unknown]
  - Hiatus hernia [Unknown]
  - Abdominal discomfort [Recovered/Resolved]
  - Nausea [Not Recovered/Not Resolved]
  - Haemorrhoids [Unknown]
  - Diverticulum intestinal [Unknown]
  - Anaemia [Unknown]
  - Gastrooesophageal reflux disease [Unknown]
  - Renal cyst [Unknown]
  - Depression [Unknown]
  - Gastrointestinal haemorrhage [Unknown]
  - Dyspepsia [Unknown]
  - Abdominal pain upper [Not Recovered/Not Resolved]
  - Abdominal pain [Unknown]
  - Angiomyolipoma [Unknown]
  - Musculoskeletal chest pain [Recovered/Resolved]
  - Diverticulitis [Unknown]
  - Gastritis [Unknown]
  - Pancreatic cyst [Not Recovered/Not Resolved]

NARRATIVE: CASE EVENT DATE: 20130102
